FAERS Safety Report 7973719-3 (Version None)
Quarter: 2011Q4

REPORT INFORMATION
  Report Type: 
  Country: None (occurrence: None)
  Receive Date: 20111213
  Receipt Date: 20111213
  Transmission Date: 20120403
  Serious: Yes (Other)
  Sender: FDA-Public Use
  Company Number: None

PATIENT
  Age: 10 Year
  Sex: Female
  Weight: 43 kg

DRUGS (2)
  1. ZITHROMAX [Suspect]
     Indication: COUGH
     Dosage: 10 ML
     Route: 048
     Dates: start: 20111210, end: 20111212
  2. ZITHROMAX [Suspect]
     Indication: NASOPHARYNGITIS
     Dosage: 10 ML
     Route: 048
     Dates: start: 20111210, end: 20111212

REACTIONS (1)
  - STRABISMUS [None]
